FAERS Safety Report 15049937 (Version 1)
Quarter: 2018Q2

REPORT INFORMATION
  Report Type: Spontaneous
  Country: US (occurrence: US)
  Receive Date: 20180601
  Receipt Date: 20180601
  Transmission Date: 20180711
  Serious: No
  Sender: FDA-Public Use
  Company Number: None

PATIENT
  Age: 33 Year
  Sex: Female
  Weight: 73.03 kg

DRUGS (1)
  1. BUPRENORPHINE-NALOXONE 8-2MG TAB [Suspect]
     Active Substance: BUPRENORPHINE\NALOXONE
     Indication: DRUG DEPENDENCE
     Dates: start: 20180320, end: 20180403

REACTIONS (2)
  - Nausea [None]
  - Retching [None]

NARRATIVE: CASE EVENT DATE: 20180320
